FAERS Safety Report 8987633 (Version 2)
Quarter: 2013Q1

REPORT INFORMATION
  Report Type: Report from Study
  Country: US (occurrence: US)
  Receive Date: 20121227
  Receipt Date: 20130124
  Transmission Date: 20140127
  Serious: Yes (Hospitalization)
  Sender: FDA-Public Use
  Company Number: US-PURDUE-USA-2012-0097190

PATIENT
  Age: 40 Year
  Sex: Male
  Weight: 143.5 kg

DRUGS (3)
  1. OXYCONTIN (NDA 22-272) [Suspect]
     Indication: PAIN
     Dosage: 40 MG, QID
     Route: 048
  2. ELAVIL                             /00002202/ [Concomitant]
     Indication: PAIN
     Dosage: 150 MG, HS
     Route: 048
  3. VICODIN [Concomitant]
     Indication: PAIN
     Dosage: 7.5 MG, QID
     Route: 048

REACTIONS (1)
  - Deep vein thrombosis [Recovered/Resolved]
